FAERS Safety Report 4738799-7 (Version None)
Quarter: 2005Q3

REPORT INFORMATION
  Report Type: 
  Country: None (occurrence: None)
  Receive Date: 20050804
  Receipt Date: 20050722
  Transmission Date: 20060218
  Serious: Yes (Hospitalization, Other)
  Sender: FDA-Public Use
  Company Number: 2005099017

PATIENT
  Age: 66 Year
  Sex: Female

DRUGS (7)
  1. GEODON [Suspect]
     Indication: SCHIZOPHRENIA
     Dosage: 40 MG (40 MG, 1 IN 1 D), ORAL
     Route: 048
     Dates: start: 20040701
  2. CAPTOPRIL [Concomitant]
  3. CLORANA (HYDROCHLOROTHIAZIDE) [Concomitant]
  4. INSULIN [Concomitant]
  5. ACETYLSALICYLIC ACID SRT [Concomitant]
  6. GLUCOFORMIN (METFORMIN HYDROCHLORIDE) [Concomitant]
  7. HYDRALAZINE HCL [Concomitant]

REACTIONS (2)
  - BLOOD PRESSURE INCREASED [None]
  - PNEUMONIA [None]
